FAERS Safety Report 5241783-0 (Version None)
Quarter: 2007Q1

REPORT INFORMATION
  Report Type: 
  Country: None (occurrence: None)
  Receive Date: 20070220
  Receipt Date: 20070209
  Transmission Date: 20070707
  Serious: Yes (Hospitalization)
  Sender: FDA-Public Use
  Company Number: 2007AP00868

PATIENT
  Age: 18580 Day
  Sex: Male
  Weight: 75.5 kg

DRUGS (10)
  1. ATACAND [Suspect]
     Route: 048
  2. NEXIUM [Suspect]
     Route: 048
  3. MABTHERA [Suspect]
     Route: 042
     Dates: start: 20060808
  4. METHOTREXATE [Suspect]
     Route: 042
     Dates: start: 20060809
  5. VINCRISTINE SULFATE [Suspect]
     Route: 042
     Dates: start: 20060809
  6. MESNA [Suspect]
     Route: 042
  7. DILANTIN [Suspect]
  8. HOLOXAN [Suspect]
     Indication: MALIGNANT LYMPHOID NEOPLASM
     Route: 042
     Dates: start: 20060810, end: 20060813
  9. HOLOXAN [Suspect]
     Route: 042
     Dates: start: 20060810, end: 20060813
  10. SODIBIC [Concomitant]
     Route: 048

REACTIONS (1)
  - RENAL FAILURE ACUTE [None]
